FAERS Safety Report 9577850 (Version 1)
Quarter: 2013Q4

REPORT INFORMATION
  Report Type: Spontaneous
  Country: US (occurrence: US)
  Receive Date: 20131001
  Receipt Date: 20131001
  Transmission Date: 20140711
  Serious: No
  Sender: FDA-Public Use
  Company Number: US-AMGEN-USASP2013010029

PATIENT
  Sex: Female

DRUGS (11)
  1. ENBREL [Suspect]
     Indication: PRODUCT USED FOR UNKNOWN INDICATION
     Dosage: 50 MG, QWK
     Route: 058
  2. CITRACAL + D                       /01438101/ [Concomitant]
     Dosage: UNK
  3. REFRESH P.M. [Concomitant]
     Dosage: UNK
  4. RESTASIS [Concomitant]
     Dosage: 0.05 %, UNK
  5. LEVOTHYROXIN [Concomitant]
     Dosage: 100 MUG, UNK
  6. SPIRONOLACTON [Concomitant]
     Dosage: 25 MG, UNK
  7. FORTICAL                           /00371903/ [Concomitant]
     Dosage: 200/ACT
  8. PREVACID [Concomitant]
     Dosage: 15 MG, UNK
  9. ENULOSE [Concomitant]
     Dosage: 10GM/15
  10. CALCIUM [Concomitant]
     Dosage: 500 UNK, UNK
  11. FERROUS SULFATE [Concomitant]
     Dosage: UNK

REACTIONS (2)
  - Hypoaesthesia [Unknown]
  - Hypoaesthesia oral [Unknown]
